APPROVED DRUG PRODUCT: TOLAZAMIDE
Active Ingredient: TOLAZAMIDE
Strength: 500MG
Dosage Form/Route: TABLET;ORAL
Application: A070259 | Product #003
Applicant: NATCO PHARMA LTD
Approved: Mar 17, 1986 | RLD: No | RS: No | Type: DISCN